FAERS Safety Report 4978983-0 (Version None)
Quarter: 2006Q2

REPORT INFORMATION
  Report Type: 
  Country: None (occurrence: None)
  Receive Date: 20060419
  Receipt Date: 20060419
  Transmission Date: 20061013
  Serious: Yes (Life-Threatening, Hospitalization)
  Sender: FDA-Public Use
  Company Number: None

PATIENT

DRUGS (1)
  1. PLAVIX [Suspect]
     Indication: ATRIAL FIBRILLATION
     Dosage: 75MG   DAILY   PO
     Route: 048
     Dates: start: 20060203, end: 20060210

REACTIONS (8)
  - HYPOXIA [None]
  - LEUKOPENIA [None]
  - NON-CARDIOGENIC PULMONARY OEDEMA [None]
  - OEDEMA PERIPHERAL [None]
  - PETECHIAE [None]
  - PURPURA [None]
  - RENAL FAILURE ACUTE [None]
  - THROMBOCYTOPENIA [None]
